FAERS Safety Report 7542182-9 (Version None)
Quarter: 2011Q2

REPORT INFORMATION
  Report Type: 
  Country: None (occurrence: None)
  Receive Date: 20110613
  Receipt Date: 20110602
  Transmission Date: 20111010
  Serious: Yes (Life-Threatening, Hospitalization)
  Sender: FDA-Public Use
  Company Number: GB-TEVA-284587ISR

PATIENT
  Age: 34 Year
  Sex: Female

DRUGS (4)
  1. ACETAMINOPHEN [Suspect]
     Route: 048
  2. CHLORPHENIRAMINE MALEATE [Suspect]
     Route: 042
  3. FLUOXETINE HCL [Suspect]
  4. LORATADINE [Suspect]
     Dosage: 10 MILLIGRAM;
     Route: 048

REACTIONS (3)
  - HYPOKALAEMIA [None]
  - TORSADE DE POINTES [None]
  - CARDIAC ARREST [None]
